FAERS Safety Report 7861472-3 (Version None)
Quarter: 2011Q4

REPORT INFORMATION
  Report Type: 
  Country: None (occurrence: None)
  Receive Date: 20111027
  Receipt Date: 20111020
  Transmission Date: 20120403
  Serious: Yes (Hospitalization)
  Sender: FDA-Public Use
  Company Number: TR-PERRIGO-11TR008947

PATIENT
  Age: 20 Year
  Sex: Female

DRUGS (1)
  1. NAPROXEN SODIUM [Suspect]
     Indication: DYSMENORRHOEA
     Dosage: ONE TABLET, ONCE
     Route: 048

REACTIONS (8)
  - KOUNIS SYNDROME [None]
  - CHEST PAIN [None]
  - ERYTHEMA [None]
  - URTICARIA [None]
  - DYSPNOEA [None]
  - NAUSEA [None]
  - VOMITING [None]
  - TYPE I HYPERSENSITIVITY [None]
